FAERS Safety Report 9739081 (Version 6)
Quarter: 2014Q2

REPORT INFORMATION
  Report Type: Report from Study
  Country: US (occurrence: US)
  Receive Date: 20131209
  Receipt Date: 20140616
  Transmission Date: 20141212
  Serious: Yes (Death, Hospitalization)
  Sender: FDA-Public Use
  Company Number: US-JNJFOC-20131200935

PATIENT
  Age: 63 Year
  Sex: Female
  Weight: 58.4 kg

DRUGS (10)
  1. IBRUTINIB [Suspect]
     Route: 048
  2. IBRUTINIB [Suspect]
     Indication: MANTLE CELL LYMPHOMA
     Route: 048
     Dates: start: 20131104, end: 20131122
  3. ESCITALOPRAM OXALATE [Concomitant]
     Route: 048
  4. BACTRIM [Concomitant]
     Dosage: 400/80
     Route: 048
  5. FLAXSEED [Concomitant]
     Route: 048
  6. FISH OIL [Concomitant]
     Route: 048
  7. CALCIUM W/VITAMIN D NOS [Concomitant]
     Dosage: 1200MG OF CALCIM + 2000 IU OF VITAMIN D
     Route: 048
  8. METAMUCIL [Concomitant]
     Route: 048
  9. CRANBERRY PILL [Concomitant]
     Route: 048
  10. BIOTIN [Concomitant]
     Route: 048

REACTIONS (1)
  - Mantle cell lymphoma [Fatal]
